FAERS Safety Report 9551137 (Version 4)
Quarter: 2013Q4

REPORT INFORMATION
  Report Type: Spontaneous
  Country: US (occurrence: US)
  Receive Date: 20130925
  Receipt Date: 20131125
  Transmission Date: 20140711
  Serious: Yes (Hospitalization)
  Sender: FDA-Public Use
  Company Number: US-BIOGENIDEC-2013BI087026

PATIENT
  Age: 42 Year
  Sex: Female

DRUGS (3)
  1. TECFIDERA [Suspect]
     Indication: MULTIPLE SCLEROSIS
     Route: 048
     Dates: start: 201307, end: 201308
  2. TECFIDERA [Suspect]
     Indication: MULTIPLE SCLEROSIS
     Dates: start: 201308, end: 20130827
  3. TECFIDERA [Suspect]
     Indication: MULTIPLE SCLEROSIS
     Route: 048
     Dates: start: 20130617, end: 2013

REACTIONS (4)
  - Muscular weakness [Unknown]
  - Drug ineffective [Recovered/Resolved]
  - Trigeminal neuralgia [Recovered/Resolved]
  - Multiple sclerosis relapse [Not Recovered/Not Resolved]
